FAERS Safety Report 21379857 (Version 1)
Quarter: 2022Q3

REPORT INFORMATION
  Report Type: Spontaneous
  Country: US (occurrence: US)
  Receive Date: 20220927
  Receipt Date: 20220927
  Transmission Date: 20221027
  Serious: Yes (Hospitalization, Other)
  Sender: FDA-Public Use
  Company Number: US-BAYER-2022A130047

PATIENT
  Age: 66 Year
  Sex: Male

DRUGS (4)
  1. KERENDIA [Suspect]
     Active Substance: FINERENONE
     Dosage: 10 MG
     Dates: start: 2022, end: 2022
  2. KERENDIA [Suspect]
     Active Substance: FINERENONE
     Dosage: 20 MG
     Dates: start: 2022, end: 20220903
  3. ELECTROLYTES NOS [Concomitant]
     Active Substance: ELECTROLYTES NOS
     Dosage: UNK
     Dates: start: 2022
  4. IODINE [Concomitant]
     Active Substance: IODINE
     Dosage: UNK
     Dates: start: 2022

REACTIONS (7)
  - Tachycardia [None]
  - Blood pressure systolic increased [None]
  - Dizziness [None]
  - Hypokalaemia [None]
  - Glomerular filtration rate decreased [None]
  - Unevaluable event [None]
  - Heart rate increased [Recovered/Resolved]

NARRATIVE: CASE EVENT DATE: 20220101
